FAERS Safety Report 11006222 (Version 1)
Quarter: 2015Q2

REPORT INFORMATION
  Report Type: Spontaneous
  Country: US (occurrence: US)
  Receive Date: 20150409
  Receipt Date: 20150409
  Transmission Date: 20150821
  Serious: No
  Sender: FDA-Public Use
  Company Number: US-ALLERGAN-1406686US

PATIENT
  Age: 53 Year
  Sex: Female

DRUGS (3)
  1. LATISSE [Suspect]
     Active Substance: BIMATOPROST
     Dosage: UNK
     Route: 061
     Dates: start: 2013, end: 2013
  2. LATISSE [Suspect]
     Active Substance: BIMATOPROST
     Dosage: 2 GTT, UNK
     Dates: start: 2013, end: 2013
  3. LATISSE [Suspect]
     Active Substance: BIMATOPROST
     Indication: GROWTH OF EYELASHES
     Dosage: 2 GTT, BID
     Route: 061
     Dates: start: 20140302, end: 20140302

REACTIONS (2)
  - Inappropriate schedule of drug administration [Unknown]
  - Therapeutic response decreased [Unknown]
